FAERS Safety Report 15374012 (Version 1)
Quarter: 2018Q3

REPORT INFORMATION
  Report Type: Spontaneous
  Country: NL (occurrence: NL)
  Receive Date: 20180912
  Receipt Date: 20180912
  Transmission Date: 20181010
  Serious: Yes (Hospitalization)
  Sender: FDA-Public Use
  Company Number: NL-ACCORD-071426

PATIENT
  Age: 23 Year
  Sex: Male

DRUGS (1)
  1. QUETIAPINE. [Suspect]
     Active Substance: QUETIAPINE
     Indication: POST-TRAUMATIC STRESS DISORDER
     Dosage: 300 MG ONCE DAILY

REACTIONS (5)
  - Delirium [Recovering/Resolving]
  - Off label use [Unknown]
  - Electrocardiogram ST segment depression [Unknown]
  - Sinus tachycardia [Unknown]
  - Poisoning [Unknown]
